FAERS Safety Report 6675098-0 (Version None)
Quarter: 2010Q2

REPORT INFORMATION
  Report Type: 
  Country: None (occurrence: None)
  Receive Date: 20100409
  Receipt Date: 20100331
  Transmission Date: 20101027
  Serious: Yes (Other)
  Sender: FDA-Public Use
  Company Number: B0646140A

PATIENT
  Sex: Male

DRUGS (3)
  1. NEOTIGASON [Suspect]
     Indication: PSORIASIS
     Route: 048
     Dates: start: 20100320
  2. LITHIONIT [Concomitant]
     Dosage: 43MG TWICE PER DAY
  3. NOZINAN [Concomitant]
     Dosage: 50MG AT NIGHT

REACTIONS (4)
  - DIPLOPIA [None]
  - EPILEPSY [None]
  - HALLUCINATION [None]
  - VERTIGO [None]
